FAERS Safety Report 16844103 (Version 1)
Quarter: 2019Q3

REPORT INFORMATION
  Report Type: Spontaneous
  Country: DE (occurrence: DE)
  Receive Date: 20190924
  Receipt Date: 20190924
  Transmission Date: 20191005
  Serious: Yes (Hospitalization, Other)
  Sender: FDA-Public Use
  Company Number: DE-PFIZER INC-2019406976

PATIENT
  Age: 62 Year
  Sex: Female
  Weight: 71 kg

DRUGS (3)
  1. IBUPROFEN. [Suspect]
     Active Substance: IBUPROFEN
     Indication: INFLUENZA
     Dosage: 1200 MG, DAILY
     Route: 048
     Dates: start: 20020311, end: 20020317
  2. PENHEXAL [Concomitant]
     Dosage: 4.5 DF, DAILY
     Dates: start: 20020318, end: 20020323
  3. RELENZA [Suspect]
     Active Substance: ZANAMIVIR
     Indication: INFLUENZA
     Dosage: 2 UNK, DAILY
     Route: 055
     Dates: start: 20020311, end: 20020317

REACTIONS (3)
  - Hepatitis cholestatic [Not Recovered/Not Resolved]
  - Leukocytosis [Unknown]
  - Lymphocytosis [Not Recovered/Not Resolved]

NARRATIVE: CASE EVENT DATE: 20020318
